FAERS Safety Report 22597120 (Version 3)
Quarter: 2025Q1

REPORT INFORMATION
  Report Type: Spontaneous
  Country: JP (occurrence: JP)
  Receive Date: 20230613
  Receipt Date: 20250319
  Transmission Date: 20250409
  Serious: Yes (Other)
  Sender: CSL BEHRING
  Company Number: JP-BEH-2023159594

PATIENT
  Age: 6 Decade
  Sex: Male
  Weight: 83 kg

DRUGS (4)
  1. IDELVION [Suspect]
     Active Substance: COAGULATION FACTOR IX RECOMBINANT HUMAN
     Indication: Haemorrhage prophylaxis
     Route: 042
  2. IDELVION [Suspect]
     Active Substance: COAGULATION FACTOR IX RECOMBINANT HUMAN
     Indication: Haemorrhage prophylaxis
     Route: 042
  3. IDELVION [Suspect]
     Active Substance: COAGULATION FACTOR IX RECOMBINANT HUMAN
     Indication: Haemostasis
     Route: 042
  4. IDELVION [Suspect]
     Active Substance: COAGULATION FACTOR IX RECOMBINANT HUMAN
     Indication: Haemostasis
     Route: 042

REACTIONS (6)
  - Haemarthrosis [Recovered/Resolved]
  - Therapeutic product effect delayed [Unknown]
  - Gingivitis [Unknown]
  - Stomatitis [Unknown]
  - Gingival bleeding [Unknown]
  - Mouth haemorrhage [Unknown]

NARRATIVE: CASE EVENT DATE: 20221128
